FAERS Safety Report 9229894 (Version 1)
Quarter: 2013Q2

REPORT INFORMATION
  Report Type: Spontaneous
  Country: US (occurrence: None)
  Receive Date: 20130412
  Receipt Date: 20130412
  Transmission Date: 20140414
  Serious: Yes (Other)
  Sender: FDA-Public Use
  Company Number: None

PATIENT
  Sex: 0

DRUGS (1)
  1. ROCURONIUM [Suspect]
     Indication: ANAESTHESIA
     Dates: start: 20130401, end: 20130408

REACTIONS (1)
  - Drug effect delayed [None]
